FAERS Safety Report 7531776-2 (Version None)
Quarter: 2011Q2

REPORT INFORMATION
  Report Type: 
  Country: None (occurrence: None)
  Receive Date: 20110601
  Receipt Date: 20110516
  Transmission Date: 20111010
  Serious: Yes (Other)
  Sender: FDA-Public Use
  Company Number: 1000021175

PATIENT
  Age: 54 Year
  Sex: Male
  Weight: 101 kg

DRUGS (4)
  1. ROFLUMILAST (ROFLUMILAST) (500 MICROGRAM, TABLETS) [Suspect]
     Indication: CHRONIC OBSTRUCTIVE PULMONARY DISEASE
     Dosage: 500 MCG (500 MCG, 1 IN 1 D, ORAL
     Route: 048
     Dates: start: 20110419, end: 20110430
  2. ERDOMED (ERDOSTEINE) [Concomitant]
  3. SERETIDE (SALMETEROL, FLUTICASONE) [Concomitant]
  4. SPIRIVA [Concomitant]

REACTIONS (6)
  - ABDOMINAL PAIN UPPER [None]
  - NAUSEA [None]
  - DUODENAL NEOPLASM [None]
  - MYALGIA [None]
  - HEADACHE [None]
  - ASTHENIA [None]
